FAERS Safety Report 6954506-1 (Version None)
Quarter: 2010Q3

REPORT INFORMATION
  Report Type: 
  Country: None (occurrence: None)
  Receive Date: 20100829
  Receipt Date: 20100721
  Transmission Date: 20110219
  Serious: No
  Sender: FDA-Public Use
  Company Number: US-ABBOTT-10P-163-0658939-00

PATIENT
  Sex: Male
  Weight: 84.444 kg

DRUGS (9)
  1. NIASPAN [Suspect]
     Indication: HIGH DENSITY LIPOPROTEIN DECREASED
     Dosage: NIGHTLY
     Dates: start: 20100321
  2. NIASPAN [Suspect]
     Dosage: TAKEN IN THE PAST
  3. CRESTOR [Suspect]
     Indication: PRODUCT USED FOR UNKNOWN INDICATION
  4. METFORMIN [Concomitant]
     Indication: PRODUCT USED FOR UNKNOWN INDICATION
     Dosage: TAKEN AS DIRECTED
  5. PLAVIX [Concomitant]
     Indication: PRODUCT USED FOR UNKNOWN INDICATION
     Dosage: TAKEN AS DIRECTED
  6. RIPIRL [Concomitant]
     Indication: PRODUCT USED FOR UNKNOWN INDICATION
     Dosage: TAKEN AS DIRECTED
  7. GENUVIA [Concomitant]
     Indication: PRODUCT USED FOR UNKNOWN INDICATION
     Dosage: TAKEN AS DIRECTED
  8. CENTRUM DAILY MULTIVITAMIN [Concomitant]
     Indication: PRODUCT USED FOR UNKNOWN INDICATION
     Dosage: TAKEN AS DIRECTED
  9. ASPIRIN [Concomitant]
     Indication: PRODUCT USED FOR UNKNOWN INDICATION
     Dosage: TAKEN AS DIRECTED

REACTIONS (3)
  - FLUSHING [None]
  - HEADACHE [None]
  - MYALGIA [None]
